FAERS Safety Report 9318339 (Version 1)
Quarter: 2013Q2

REPORT INFORMATION
  Report Type: Spontaneous
  Country: PL (occurrence: PL)
  Receive Date: 20130530
  Receipt Date: 20130530
  Transmission Date: 20140414
  Serious: Yes (Hospitalization)
  Sender: FDA-Public Use
  Company Number: PL-PFIZER INC-2013161316

PATIENT
  Age: 35 Year
  Sex: Male

DRUGS (2)
  1. TRITACE [Suspect]
     Indication: TOXICITY TO VARIOUS AGENTS
     Dosage: 168 DF, SINGLE
     Route: 065
     Dates: start: 20120831
  2. TORECAN [Concomitant]
     Dosage: UNK
     Dates: start: 20120831

REACTIONS (2)
  - Overdose [Unknown]
  - Extrapyramidal disorder [Recovered/Resolved]
